FAERS Safety Report 24693545 (Version 1)
Quarter: 2024Q4

REPORT INFORMATION
  Report Type: Report from Study
  Country: BR (occurrence: BR)
  Receive Date: 20241204
  Receipt Date: 20241204
  Transmission Date: 20250114
  Serious: Yes (Other)
  Sender: TAKEDA
  Company Number: BR-TAKEDA-2024TUS076208

PATIENT
  Age: 25 Year
  Sex: Male

DRUGS (1)
  1. VEDOLIZUMAB [Suspect]
     Active Substance: VEDOLIZUMAB
     Indication: Colitis ulcerative
     Dosage: 300 MILLIGRAM

REACTIONS (4)
  - Autoimmune thyroiditis [Recovering/Resolving]
  - Subcutaneous abscess [Recovered/Resolved]
  - Inappropriate schedule of product administration [Unknown]
  - Product availability issue [Unknown]

NARRATIVE: CASE EVENT DATE: 20240607
